FAERS Safety Report 8806375 (Version 1)
Quarter: 2012Q4

REPORT INFORMATION
  Report Type: Spontaneous
  Country: US (occurrence: None)
  Receive Date: 20120919
  Receipt Date: 20120919
  Transmission Date: 20130627
  Serious: Yes (Other)
  Sender: FDA-Public Use
  Company Number: 12002075

PATIENT
  Age: 45 Year
  Sex: Female

DRUGS (2)
  1. PROVELLA [Suspect]
     Indication: PRODUCT USED FOR UNKNOWN INDICATION
     Dosage: 1 tablet, once, oral
     Route: 048
     Dates: start: 20120820, end: 20120820
  2. ATIVAN (LORAZEPAM) [Concomitant]

REACTIONS (11)
  - Hypersensitivity [None]
  - Sinus bradycardia [None]
  - Chest discomfort [None]
  - Chest discomfort [None]
  - Tremor [None]
  - Tremor [None]
  - Pain in extremity [None]
  - Dry mouth [None]
  - Mydriasis [None]
  - Vision blurred [None]
  - Fibrin D dimer increased [None]
